FAERS Safety Report 14789753 (Version 1)
Quarter: 2018Q2

REPORT INFORMATION
  Report Type: Spontaneous
  Country: US (occurrence: US)
  Receive Date: 20180423
  Receipt Date: 20180423
  Transmission Date: 20180711
  Serious: No
  Sender: FDA-Public Use
  Company Number: US-PFIZER INC-2018165102

PATIENT
  Age: 32 Year
  Sex: Male

DRUGS (1)
  1. EUCRISA [Suspect]
     Active Substance: CRISABOROLE
     Dosage: UNK (APPLY TO HANDS WHEN NOT USING CLOBETASOL)
     Route: 061
     Dates: start: 201801

REACTIONS (3)
  - Drug hypersensitivity [Unknown]
  - Condition aggravated [Unknown]
  - Skin disorder [Unknown]
